FAERS Safety Report 6573779-0 (Version None)
Quarter: 2010Q1

REPORT INFORMATION
  Report Type: 
  Country: None (occurrence: None)
  Receive Date: 20100208
  Receipt Date: 20100129
  Transmission Date: 20100710
  Serious: Yes (Hospitalization)
  Sender: FDA-Public Use
  Company Number: GXKR2010US01325

PATIENT
  Age: 76 Year
  Sex: Female

DRUGS (2)
  1. LOSARTAN (NGX) [Suspect]
     Dosage: 50 MG/DAY
     Route: 048
  2. DIGOXIN (NGX) [Suspect]
     Route: 065

REACTIONS (5)
  - BRADYCARDIA [None]
  - CARDIAC PACEMAKER INSERTION [None]
  - HYPERKALAEMIA [None]
  - METABOLIC ACIDOSIS [None]
  - RENAL FAILURE ACUTE [None]
